FAERS Safety Report 23753499 (Version 2)
Quarter: 2024Q2

REPORT INFORMATION
  Report Type: Spontaneous
  Country: ES (occurrence: ES)
  Receive Date: 20240417
  Receipt Date: 20240422
  Transmission Date: 20240716
  Serious: Yes (Hospitalization)
  Sender: FDA-Public Use
  Company Number: ES-GILEAD-2024-0668376

PATIENT
  Sex: Male
  Weight: 81.6 kg

DRUGS (12)
  1. CARBOPLATIN [Suspect]
     Active Substance: CARBOPLATIN
     Indication: Non-small cell lung cancer metastatic
     Dosage: 720 MG
     Route: 042
     Dates: start: 20230818, end: 20230818
  2. DOMVANALIMAB [Suspect]
     Active Substance: DOMVANALIMAB
     Indication: Non-small cell lung cancer metastatic
     Dosage: 1200 MG
     Route: 042
     Dates: start: 20230818, end: 20230818
  3. DOMVANALIMAB [Suspect]
     Active Substance: DOMVANALIMAB
     Dosage: 1200 MG
     Route: 042
     Dates: start: 20240318, end: 20240318
  4. PEMETREXED [Suspect]
     Active Substance: PEMETREXED
     Indication: Non-small cell lung cancer metastatic
     Dosage: 1000 MG
     Route: 042
     Dates: start: 20240318, end: 20240318
  5. PEMETREXED [Suspect]
     Active Substance: PEMETREXED
     Dosage: 1000 MG
     Route: 042
     Dates: start: 20230818
  6. ZIMBERELIMAB [Suspect]
     Active Substance: ZIMBERELIMAB
     Indication: Non-small cell lung cancer metastatic
     Dosage: 360 MG
     Route: 042
     Dates: start: 20230818, end: 20230818
  7. ZIMBERELIMAB [Suspect]
     Active Substance: ZIMBERELIMAB
     Dosage: 360 MG
     Route: 042
     Dates: start: 20240318, end: 20240318
  8. B12 [Concomitant]
     Indication: Product used for unknown indication
     Dosage: UNK
     Route: 030
     Dates: start: 20230821
  9. FOLIC ACID [Concomitant]
     Active Substance: FOLIC ACID
     Indication: Product used for unknown indication
     Dosage: UNK
     Route: 048
     Dates: start: 20230814
  10. CALCIUM CARBONATE\CHOLECALCIFEROL [Concomitant]
     Active Substance: CALCIUM CARBONATE\CHOLECALCIFEROL
     Indication: Prophylaxis
     Dosage: UNK
     Route: 048
     Dates: start: 202308
  11. NICOTINE [Concomitant]
     Active Substance: NICOTINE
     Indication: Product used for unknown indication
     Dosage: UNK
     Route: 003
     Dates: start: 20230907
  12. PREDNISONE [Concomitant]
     Active Substance: PREDNISONE
     Indication: Premedication
     Dosage: UNK
     Route: 048

REACTIONS (1)
  - Cellulite [Recovered/Resolved]

NARRATIVE: CASE EVENT DATE: 20240404
